FAERS Safety Report 6244891-0 (Version None)
Quarter: 2009Q2

REPORT INFORMATION
  Report Type: 
  Country: None (occurrence: None)
  Receive Date: 20090625
  Receipt Date: 20090622
  Transmission Date: 20091009
  Serious: Yes (Hospitalization)
  Sender: FDA-Public Use
  Company Number: DE-WYE-H09846409

PATIENT
  Sex: Male

DRUGS (10)
  1. SIROLIMUS [Suspect]
     Indication: PROPHYLAXIS AGAINST TRANSPLANT REJECTION
     Route: 048
     Dates: start: 20040914, end: 20040916
  2. SIROLIMUS [Suspect]
     Route: 048
     Dates: start: 20040917, end: 20041005
  3. CEFOXITIN [Concomitant]
     Dosage: NOT PROVIDED
     Dates: start: 20040914, end: 20040916
  4. PREDNISONE [Concomitant]
     Indication: PROPHYLAXIS AGAINST TRANSPLANT REJECTION
     Dosage: 30 MG DAILY THEN TAPERED DOWN
     Route: 048
     Dates: start: 20040915
  5. MYCOPHENOLATE MOFETIL [Concomitant]
     Route: 048
     Dates: start: 20040914, end: 20040914
  6. MYCOPHENOLATE MOFETIL [Concomitant]
     Route: 048
     Dates: start: 20040915
  7. PREDNISOLONE [Concomitant]
     Indication: PROPHYLAXIS AGAINST TRANSPLANT REJECTION
     Dosage: 500 MG
     Route: 042
     Dates: start: 20040914, end: 20040914
  8. DACLIZUMAB [Concomitant]
     Indication: PROPHYLAXIS AGAINST TRANSPLANT REJECTION
     Dosage: 150 MG
     Route: 042
     Dates: start: 20040914, end: 20040914
  9. BISOPROLOL FUMARATE [Concomitant]
     Dosage: NOT PROVIDED
     Dates: start: 20040919
  10. ENOXAPARIN SODIUM [Concomitant]
     Dosage: NOT PROVIDED
     Dates: start: 20040915

REACTIONS (1)
  - SEROMA [None]
